FAERS Safety Report 4928922-3 (Version None)
Quarter: 2006Q1

REPORT INFORMATION
  Report Type: 
  Country: None (occurrence: None)
  Receive Date: 20060301
  Receipt Date: 20060217
  Transmission Date: 20060701
  Serious: Yes (Death)
  Sender: FDA-Public Use
  Company Number: GB-JNJFOC-20051205147

PATIENT
  Age: 15 Year
  Sex: Female

DRUGS (1)
  1. TRAMADOL HCL [Suspect]
     Indication: INTENTIONAL OVERDOSE
     Dosage: TOOK UP TO 40 TABLETS.
     Route: 048

REACTIONS (7)
  - ACCIDENTAL DEATH [None]
  - CEREBRAL ISCHAEMIA [None]
  - DROWNING [None]
  - DRUG TOXICITY [None]
  - INTENTIONAL OVERDOSE [None]
  - MORBID THOUGHTS [None]
  - NEAR DROWNING [None]
